FAERS Safety Report 6176983-9 (Version None)
Quarter: 2009Q2

REPORT INFORMATION
  Report Type: 
  Country: None (occurrence: None)
  Receive Date: 20090501
  Receipt Date: 20090206
  Transmission Date: 20091009
  Serious: Yes (Hospitalization)
  Sender: FDA-Public Use
  Company Number: US-ALEXION-A200900115

PATIENT
  Sex: Male

DRUGS (8)
  1. SOLIRIS [Suspect]
     Indication: PAROXYSMAL NOCTURNAL HAEMOGLOBINURIA
     Dosage: 600 MG QWK X4 WEEKS
     Route: 042
     Dates: start: 20080804
  2. SOLIRIS [Suspect]
     Dosage: 900 MG Q2WK
     Route: 042
     Dates: start: 20080902
  3. WARFARIN SODIUM [Concomitant]
     Dosage: 5 MG ALTERNATING WITH 2.5 MG
  4. SPIRONOLACTONE [Concomitant]
     Dosage: 60 MG, BID
  5. NADOLOL [Concomitant]
     Dosage: 80 MG, BID
  6. PREDNISONE [Concomitant]
     Dosage: 10 MG, QD
  7. LASIX [Concomitant]
     Dosage: 40 MG, QD
  8. ARTIFICIAL TEARS                   /00445101/ [Concomitant]
     Dosage: UNK

REACTIONS (1)
  - PRESYNCOPE [None]
